FAERS Safety Report 9239711 (Version 4)
Quarter: 2013Q3

REPORT INFORMATION
  Report Type: Spontaneous
  Country: US (occurrence: US)
  Receive Date: 20130418
  Receipt Date: 20130816
  Transmission Date: 20140515
  Serious: No
  Sender: FDA-Public Use
  Company Number: US-PFIZER INC-2013115828

PATIENT
  Age: 58 Year
  Sex: Female
  Weight: 122 kg

DRUGS (29)
  1. XELJANZ [Suspect]
     Indication: RHEUMATOID ARTHRITIS
     Dosage: 5 MG, 2X/DAY
     Route: 048
     Dates: start: 20130226
  2. JANUVIA [Concomitant]
     Indication: DIABETES MELLITUS
     Dosage: 25 MG, UNK
  3. LASIX [Concomitant]
     Dosage: 20 MG, UNK
  4. VITAMIN B12 [Concomitant]
     Dosage: 1000 CR,
  5. PREDNISONE [Concomitant]
     Dosage: 50 MG, UNK
  6. LIPITOR [Concomitant]
     Dosage: 40 MG, UNK
  7. VITAMIN D3 [Concomitant]
     Dosage: 10000 IU, UNK
  8. NASONEX [Concomitant]
     Dosage: 50 UG, UNK
  9. LISINOPRIL [Concomitant]
     Dosage: 2.5 MG, UNK
  10. FLONASE [Concomitant]
     Indication: SEASONAL ALLERGY
     Dosage: 0.05 %, UNK
  11. ALLOPURINOL [Concomitant]
     Indication: SEASONAL ALLERGY
     Dosage: 100 MG, UNK
  12. FOLIC ACID [Concomitant]
     Dosage: UNK
  13. LEXAPRO [Concomitant]
     Dosage: 10 MG, UNK
  14. LORATADINE [Concomitant]
     Dosage: UNK
  15. ALBUTEROL [Concomitant]
     Indication: SEASONAL ALLERGY
     Dosage: 90 UG, RF
  16. CALCIUM [Concomitant]
     Dosage: 500 UNK
  17. BUPROPION [Concomitant]
     Dosage: 100 MG, UNK
  18. BABY ASPIRIN [Concomitant]
     Dosage: 81 MG, UNK
  19. METFORMIN [Concomitant]
     Indication: DIABETES MELLITUS
     Dosage: 500 MG, UNK
  20. NEXIUM [Concomitant]
     Dosage: 40 MG, UNK
  21. METHOTREXATE [Concomitant]
     Dosage: 1 G, UNK
  22. GLIPIZIDE [Concomitant]
     Indication: DIABETES MELLITUS
     Dosage: 2.5 MG, UNK
  23. VITAMIN C [Concomitant]
     Dosage: 500 MG, UNK
  24. IRON [Concomitant]
     Dosage: UNK
  25. PERCOCET [Concomitant]
     Dosage: 2.5-325, UNK
  26. PERCOCET [Concomitant]
     Dosage: 7.5/ML, UNK
  27. TOPAMAX [Concomitant]
     Dosage: UNK
  28. MULTIVITAMINS [Concomitant]
     Dosage: UNK
  29. MTX [Concomitant]
     Dosage: 20/ML, UNK

REACTIONS (4)
  - Depression [Recovered/Resolved]
  - Skin disorder [Unknown]
  - Contusion [Unknown]
  - Fungal infection [Recovered/Resolved]
